FAERS Safety Report 24428532 (Version 1)
Quarter: 2024Q4

REPORT INFORMATION
  Report Type: Spontaneous
  Country: JP (occurrence: JP)
  Receive Date: 20241011
  Receipt Date: 20241011
  Transmission Date: 20250114
  Serious: Yes (Other)
  Sender: ROCHE
  Company Number: JP-CHUGAI-2024034321

PATIENT
  Age: 8 Decade
  Sex: Male

DRUGS (10)
  1. AVASTIN [Suspect]
     Active Substance: BEVACIZUMAB
     Indication: Rectosigmoid cancer
     Dosage: UNK
     Route: 042
  2. RAMUCIRUMAB [Suspect]
     Active Substance: RAMUCIRUMAB
     Indication: Rectosigmoid cancer
     Dosage: UNK
     Route: 042
  3. OXALIPLATIN [Concomitant]
     Active Substance: OXALIPLATIN
     Indication: Rectosigmoid cancer
     Dosage: UNK
     Route: 042
  4. XELODA [Concomitant]
     Active Substance: CAPECITABINE
     Indication: Rectosigmoid cancer
     Dosage: UNK
     Route: 050
  5. IRINOTECAN HYDROCHLORIDE [Concomitant]
     Active Substance: IRINOTECAN HYDROCHLORIDE
     Indication: Rectosigmoid cancer
     Dosage: UNK
     Route: 042
  6. FLUOROURACIL [Concomitant]
     Active Substance: FLUOROURACIL
     Indication: Rectosigmoid cancer
     Dosage: UNK
     Route: 042
  7. LEVOLEUCOVORIN CALCIUM [Concomitant]
     Active Substance: LEVOLEUCOVORIN CALCIUM
     Indication: Rectosigmoid cancer
     Dosage: UNK
     Route: 042
  8. IRBESARTAN [Concomitant]
     Active Substance: IRBESARTAN
     Indication: Hypertension
     Dosage: 200 MILLIGRAM/DAY
     Route: 050
  9. AMLODIPINE BESYLATE [Concomitant]
     Active Substance: AMLODIPINE BESYLATE
     Indication: Hypertension
     Dosage: 10 MILLIGRAM/DAY
     Route: 050
  10. CALCIUM CARBONATE\CHOLECALCIFEROL\MAGNESIUM CARBONATE [Concomitant]
     Active Substance: CALCIUM CARBONATE\CHOLECALCIFEROL\MAGNESIUM CARBONATE
     Dosage: 2 TABLET/DAY
     Route: 050

REACTIONS (1)
  - Thrombotic microangiopathy [Unknown]
